FAERS Safety Report 8373120-7 (Version None)
Quarter: 2012Q2

REPORT INFORMATION
  Report Type: 
  Country: None (occurrence: None)
  Receive Date: 20120521
  Receipt Date: 20120510
  Transmission Date: 20120825
  Serious: Yes (Other)
  Sender: FDA-Public Use
  Company Number: AU-PFIZER INC-2010047258

PATIENT
  Age: 49 Year
  Sex: Male

DRUGS (7)
  1. EFFEXOR XR [Suspect]
     Indication: DEPRESSION
  2. GASTRO-STOP [Concomitant]
     Dosage: UNK
  3. LAMICTAL [Suspect]
     Indication: BIPOLAR DISORDER
     Dosage: 100 MG, 1X/DAY
     Route: 048
  4. EFFEXOR XR [Suspect]
     Indication: BIPOLAR DISORDER
     Dosage: 75 MG, 1X/DAY
  5. VALPROATE SODIUM [Suspect]
     Indication: BIPOLAR DISORDER
     Dosage: 50 MG, FIVE TIMES DAILY
  6. VARENICLINE TARTRATE [Suspect]
     Indication: SMOKING CESSATION THERAPY
     Dosage: 0.5 - 1MG
     Route: 048
  7. LITHIUM CARBONATE [Concomitant]
     Indication: BIPOLAR DISORDER
     Dosage: 100 MG, 3X/DAY

REACTIONS (2)
  - EXTRAPYRAMIDAL DISORDER [None]
  - TREMOR [None]
